FAERS Safety Report 7995637-7 (Version None)
Quarter: 2011Q4

REPORT INFORMATION
  Report Type: 
  Country: None (occurrence: None)
  Receive Date: 20111217
  Receipt Date: 20111217
  Transmission Date: 20120403
  Serious: No
  Sender: FDA-Public Use
  Company Number: None

PATIENT
  Age: 50 Year
  Sex: Female
  Weight: 95.2554 kg

DRUGS (2)
  1. SEROQUEL [Suspect]
     Indication: SCHIZOPHRENIA
     Dosage: HELD 5MG
  2. RISPERIDONE [Suspect]
     Indication: BIPOLAR DISORDER
     Dosage: RES 200 MG

REACTIONS (10)
  - BRAIN INJURY [None]
  - CYSTITIS [None]
  - HOT FLUSH [None]
  - WEIGHT INCREASED [None]
  - MEMORY IMPAIRMENT [None]
  - TREMOR [None]
  - PARKINSON'S DISEASE [None]
  - DEMENTIA [None]
  - EYE HAEMORRHAGE [None]
  - HYPERTENSION [None]
